FAERS Safety Report 5519377-9 (Version None)
Quarter: 2007Q4

REPORT INFORMATION
  Report Type: 
  Country: None (occurrence: None)
  Receive Date: 20071114
  Receipt Date: 20071102
  Transmission Date: 20080405
  Serious: Yes (Disabling)
  Sender: FDA-Public Use
  Company Number: DSA_30813_2007

PATIENT
  Sex: Female

DRUGS (1)
  1. DILTIAZEM [Suspect]
     Indication: DRUG USE FOR UNKNOWN INDICATION
     Dosage: (60 MG BID ORAL)
     Route: 048

REACTIONS (10)
  - CHILLS [None]
  - DYSSTASIA [None]
  - FEELING COLD [None]
  - MUSCULAR WEAKNESS [None]
  - MUSCULOSKELETAL PAIN [None]
  - MYALGIA [None]
  - PAIN IN EXTREMITY [None]
  - TREMOR [None]
  - URINARY INCONTINENCE [None]
  - VISUAL DISTURBANCE [None]
